FAERS Safety Report 24375469 (Version 1)
Quarter: 2024Q3

REPORT INFORMATION
  Report Type: Spontaneous
  Country: DE (occurrence: DE)
  Receive Date: 20240928
  Receipt Date: 20240928
  Transmission Date: 20241017
  Serious: Yes (Life-Threatening, Other)
  Sender: AUROBINDO
  Company Number: DE-TEVA-2023-GB-2905513

PATIENT
  Age: 86 Year
  Sex: Female
  Weight: 56 kg

DRUGS (133)
  1. ASPIRIN [Suspect]
     Active Substance: ASPIRIN
     Indication: Coagulopathy
     Dosage: 100 MILLIGRAM, QD
     Route: 048
     Dates: start: 20000914, end: 20000917
  2. ASPIRIN [Suspect]
     Active Substance: ASPIRIN
     Dosage: 100 MILLIGRAM, QD
     Route: 048
     Dates: start: 20000828, end: 20000831
  3. DIAZEPAM [Suspect]
     Active Substance: DIAZEPAM
     Indication: Sedation
     Dosage: UNK
     Route: 042
     Dates: start: 20000913, end: 20000913
  4. ASPIRIN [Suspect]
     Active Substance: ASPIRIN
     Indication: Coagulopathy
     Dosage: 100 MILLIGRAM, ONCE A DAY
     Route: 048
     Dates: start: 20000914, end: 20000917
  5. ASPIRIN [Suspect]
     Active Substance: ASPIRIN
     Dosage: 100 MILLIGRAM, ONCE A DAY
     Route: 048
     Dates: start: 20000828, end: 20000831
  6. CLONIDINE [Suspect]
     Active Substance: CLONIDINE
     Indication: Coronary artery disease
     Dosage: UNK
     Route: 042
     Dates: start: 20000913, end: 20000913
  7. CLONIDINE [Suspect]
     Active Substance: CLONIDINE
     Indication: Hypertension
  8. CLONIDINE [Suspect]
     Active Substance: CLONIDINE
     Indication: Coronary artery disease
     Dosage: UNK
     Route: 042
     Dates: start: 20000913, end: 20000913
  9. CLONIDINE [Suspect]
     Active Substance: CLONIDINE
     Indication: Hypertension
  10. CLONIDINE HYDROCHLORIDE [Suspect]
     Active Substance: CLONIDINE HYDROCHLORIDE
     Indication: Coronary artery disease
     Dosage: UNK
     Route: 042
     Dates: start: 20000913, end: 20000913
  11. CLONIDINE HYDROCHLORIDE [Suspect]
     Active Substance: CLONIDINE HYDROCHLORIDE
     Indication: Hypertension
     Dosage: UNK
     Route: 042
  12. FENTANYL [Suspect]
     Active Substance: FENTANYL\FENTANYL CITRATE
     Indication: Pain
     Dosage: 150 MCG, QH, MICROGRAMS PER INHALATION, 72 QH
     Route: 062
  13. FENTANYL [Suspect]
     Active Substance: FENTANYL\FENTANYL CITRATE
     Dosage: 50 MCG, QH, MICROGRAMS PER INHALATION, 72 QH
     Route: 062
  14. FENTANYL [Suspect]
     Active Substance: FENTANYL\FENTANYL CITRATE
     Dosage: 1 DOSAGE FORM, Q3D
     Route: 062
     Dates: start: 20000820, end: 20000916
  15. FENTANYL [Suspect]
     Active Substance: FENTANYL\FENTANYL CITRATE
     Dosage: 125 MICROGRAM, QH, MICROGRAMS PER INHALATION
     Route: 062
  16. FENTANYL [Suspect]
     Active Substance: FENTANYL\FENTANYL CITRATE
     Indication: Pain
     Dosage: 150 DOSAGE FORM
     Route: 062
     Dates: start: 20000820, end: 20000916
  17. FENTANYL [Suspect]
     Active Substance: FENTANYL\FENTANYL CITRATE
     Dosage: 50 MCG, MICROGRAMS PER INHALATION, 72 - EVERY HOUR
     Route: 062
  18. FENTANYL [Suspect]
     Active Substance: FENTANYL\FENTANYL CITRATE
     Dosage: 125 MICROGRAMS PER INHALATION
     Route: 062
  19. DALTEPARIN SODIUM [Suspect]
     Active Substance: DALTEPARIN SODIUM
     Indication: Thrombosis prophylaxis
     Dosage: UNK
     Route: 058
     Dates: start: 20000820, end: 20000917
  20. DALTEPARIN SODIUM [Suspect]
     Active Substance: DALTEPARIN SODIUM
     Indication: Coagulopathy
  21. FENTANYL [Concomitant]
     Active Substance: FENTANYL\FENTANYL CITRATE
     Indication: Pain
     Dosage: 1 DOSAGE FORM
     Route: 062
     Dates: start: 20000820, end: 20000916
  22. FENTANYL [Concomitant]
     Active Substance: FENTANYL\FENTANYL CITRATE
     Dosage: 150 DOSAGE FORM
     Route: 062
     Dates: start: 20000820, end: 20000916
  23. FENTANYL [Concomitant]
     Active Substance: FENTANYL\FENTANYL CITRATE
     Dosage: 150 MICROGRAM (1 HOUR)
     Route: 062
  24. FENTANYL [Concomitant]
     Active Substance: FENTANYL\FENTANYL CITRATE
     Dosage: 50 MICROGRAM
     Route: 062
  25. FENTANYL [Concomitant]
     Active Substance: FENTANYL\FENTANYL CITRATE
     Dosage: 125 MICROGRAM
     Route: 062
  26. PREDNISOLONE [Suspect]
     Active Substance: PREDNISOLONE
     Indication: Dermatitis bullous
     Dosage: UNK
     Route: 048
     Dates: start: 20000820, end: 20000917
  27. PREDNISOLONE [Suspect]
     Active Substance: PREDNISOLONE
     Indication: Pemphigoid
     Dosage: 50 MILLIGRAM, ONCE A DAY
     Route: 048
  28. PREDNISOLONE [Suspect]
     Active Substance: PREDNISOLONE
     Indication: Dermatitis bullous
     Dosage: 60 MILLIGRAM, ONCE A DAY
     Route: 048
  29. PREDNISOLONE [Suspect]
     Active Substance: PREDNISOLONE
     Dosage: 40 MILLIGRAM, ONCE A DAY
     Route: 048
  30. PREDNISOLONE [Suspect]
     Active Substance: PREDNISOLONE
     Dosage: 80 MILLIGRAM, ONCE A DAY
     Route: 048
  31. PREDNISOLONE [Suspect]
     Active Substance: PREDNISOLONE
     Dosage: 60 MILLIGRAM, ONCE A DAY
     Route: 048
  32. PREDNISOLONE [Suspect]
     Active Substance: PREDNISOLONE
     Dosage: 50 MILLIGRAM, ONCE A DAY
     Route: 048
  33. PREDNISOLONE [Suspect]
     Active Substance: PREDNISOLONE
     Dosage: 40 MILLIGRAM, ONCE A DAY
     Route: 048
  34. PREDNISOLONE [Suspect]
     Active Substance: PREDNISOLONE
     Dosage: 80 MILLIGRAM, ONCE A DAY
     Route: 048
  35. PREDNISOLONE [Suspect]
     Active Substance: PREDNISOLONE
     Dosage: 50 MILLIGRAM, ONCE A DAY
     Route: 048
  36. PREDNISOLONE [Suspect]
     Active Substance: PREDNISOLONE
     Dosage: 80 MILLIGRAM, ONCE A DAY
     Route: 048
  37. PREDNISOLONE [Suspect]
     Active Substance: PREDNISOLONE
     Dosage: 40 MILLIGRAM, ONCE A DAY
     Route: 048
  38. PREDNISOLONE [Suspect]
     Active Substance: PREDNISOLONE
     Dosage: 60 MILLIGRAM, ONCE A DAY
     Route: 048
  39. PREDNISOLONE [Suspect]
     Active Substance: PREDNISOLONE
     Dosage: 60 MILLIGRAM
  40. PREDNISOLONE [Suspect]
     Active Substance: PREDNISOLONE
     Dosage: 80 MILLIGRAM, ONCE A DAY
  41. PREDNISOLONE [Suspect]
     Active Substance: PREDNISOLONE
     Dosage: 50 MILLIGRAM, ONCE A DAY
     Route: 048
  42. PREDNISOLONE [Suspect]
     Active Substance: PREDNISOLONE
     Dosage: 40 MILLIGRAM, ONCE A DAY
     Route: 048
  43. PREDNISOLONE [Suspect]
     Active Substance: PREDNISOLONE
     Dosage: 50 MILLIGRAM, ONCE A DAY
     Route: 048
  44. PREDNISOLONE [Suspect]
     Active Substance: PREDNISOLONE
     Dosage: 40 MILLIGRAM, ONCE A DAY
     Route: 048
  45. PREDNISOLONE [Suspect]
     Active Substance: PREDNISOLONE
     Dosage: 60 MILLIGRAM, ONCE A DAY
     Route: 048
  46. PREDNISOLONE [Suspect]
     Active Substance: PREDNISOLONE
     Dosage: 80 MILLIGRAM, ONCE A DAY
     Route: 048
  47. PREDNISOLONE [Suspect]
     Active Substance: PREDNISOLONE
     Dosage: 50 UNK
     Route: 048
  48. PREDNISOLONE [Suspect]
     Active Substance: PREDNISOLONE
     Dosage: 80 MG, QD
     Route: 048
  49. PREDNISOLONE [Suspect]
     Active Substance: PREDNISOLONE
     Dosage: 60 UNK
     Route: 048
  50. PREDNISOLONE [Suspect]
     Active Substance: PREDNISOLONE
     Dosage: 40 MG, QD
     Route: 048
  51. GLYBURIDE [Suspect]
     Active Substance: GLYBURIDE
     Indication: Diabetes mellitus
     Dosage: 3 DOSAGE FORM
     Route: 048
     Dates: start: 20000820, end: 20000917
  52. FRAGMIN [Suspect]
     Active Substance: DALTEPARIN SODIUM
     Indication: Coagulopathy
     Dosage: UNK
     Route: 058
     Dates: start: 20000820, end: 20000917
  53. FRAGMIN [Suspect]
     Active Substance: DALTEPARIN SODIUM
     Indication: Thrombosis prophylaxis
     Dosage: UNK
     Route: 058
     Dates: start: 20200820, end: 20200917
  54. FRAGMIN [Suspect]
     Active Substance: DALTEPARIN SODIUM
     Dosage: UNK
     Route: 058
  55. DALTEPARIN SODIUM [Suspect]
     Active Substance: DALTEPARIN SODIUM
     Indication: Coagulopathy
     Dosage: UNK
     Route: 058
     Dates: start: 20000820, end: 20000917
  56. DALTEPARIN SODIUM [Suspect]
     Active Substance: DALTEPARIN SODIUM
     Indication: Thrombosis prophylaxis
  57. GLYBURIDE [Suspect]
     Active Substance: GLYBURIDE
     Indication: Diabetes mellitus
     Dosage: 3 DF
     Route: 048
     Dates: start: 20000820, end: 20000917
  58. INSULIN NOS [Suspect]
     Active Substance: INSULIN NOS
     Indication: Diabetes mellitus
     Dosage: UNK (SC EXCEPT ON 13-SEP-2000 WHEN GIVEN IV)
     Route: 058
     Dates: start: 20000820, end: 20000917
  59. INSULIN NOS [Suspect]
     Active Substance: INSULIN NOS
     Dosage: UNK (SC EXCEPT ON 13-SEP-2000 WHEN GIVEN IV)
     Route: 042
     Dates: start: 20000913, end: 20000913
  60. NOREPINEPHRINE [Suspect]
     Active Substance: NOREPINEPHRINE\NOREPINEPHRINE BITARTRATE
     Indication: Coronary artery disease
     Dosage: UNK
     Route: 042
     Dates: start: 20000913, end: 20000913
  61. LORMETAZEPAM [Suspect]
     Active Substance: LORMETAZEPAM
     Indication: Sedation
     Dosage: 2 DOSAGE FORM, QD
     Route: 048
     Dates: start: 20000913, end: 20000913
  62. LIDOCAINE HYDROCHLORIDE [Suspect]
     Active Substance: LIDOCAINE HYDROCHLORIDE
     Indication: Local anaesthesia
     Dosage: UNK
     Route: 058
     Dates: start: 20000913, end: 20000913
  63. MOLSIDOMINE [Suspect]
     Active Substance: MOLSIDOMINE
     Indication: Coronary artery disease
     Dosage: 8 MG, QD
     Route: 048
     Dates: start: 20000820, end: 20000914
  64. ISOSORBIDE MONONITRATE [Suspect]
     Active Substance: ISOSORBIDE MONONITRATE
     Indication: Angina pectoris
     Dosage: 1 DF, QD
     Route: 048
     Dates: start: 20000820, end: 20000917
  65. ACETAMINOPHEN\CAFFEINE\PROPYPHENAZONE [Suspect]
     Active Substance: ACETAMINOPHEN\CAFFEINE\PROPYPHENAZONE
     Indication: Pain
     Dosage: 20 GTT, 1 DOSE DAILY
     Route: 048
     Dates: start: 20000820, end: 20000917
  66. ACETAMINOPHEN\CAFFEINE\PROPYPHENAZONE [Suspect]
     Active Substance: ACETAMINOPHEN\CAFFEINE\PROPYPHENAZONE
     Indication: General symptom
     Dosage: UNK
     Route: 048
  67. ACETAMINOPHEN\CAFFEINE\PROPYPHENAZONE [Suspect]
     Active Substance: ACETAMINOPHEN\CAFFEINE\PROPYPHENAZONE
     Indication: Pain
     Dosage: UNK
  68. ACETAMINOPHEN\CAFFEINE\PROPYPHENAZONE [Suspect]
     Active Substance: ACETAMINOPHEN\CAFFEINE\PROPYPHENAZONE
     Dosage: UNK
     Route: 048
  69. LORMETAZEPAM [Suspect]
     Active Substance: LORMETAZEPAM
     Indication: Sedation
     Dosage: 2 DF, 1 DOSE DAILY ()SUSPENSION AEROSOL
     Route: 048
     Dates: start: 20000913, end: 20000913
  70. LORMETAZEPAM [Suspect]
     Active Substance: LORMETAZEPAM
     Indication: Sedative therapy
     Dosage: 2 DOSAGE FORM, QD
     Route: 065
  71. LORMETAZEPAM [Suspect]
     Active Substance: LORMETAZEPAM
     Dosage: UNK
     Route: 065
  72. NOREPINEPHRINE [Suspect]
     Active Substance: NOREPINEPHRINE\NOREPINEPHRINE BITARTRATE
     Indication: Coronary artery disease
     Dosage: UNK
     Route: 042
     Dates: start: 20000913, end: 20000913
  73. NORTRIPTYLINE [Suspect]
     Active Substance: NORTRIPTYLINE
     Indication: Coronary artery disease
     Dosage: UNK
     Route: 042
     Dates: start: 20000913, end: 20000913
  74. OMEPRAZOLE [Suspect]
     Active Substance: OMEPRAZOLE
     Indication: Prophylaxis against gastrointestinal ulcer
     Dosage: 20 MILLIGRAM, QD
     Route: 048
     Dates: start: 20000820, end: 20000917
  75. OMEPRAZOLE MAGNESIUM [Suspect]
     Active Substance: OMEPRAZOLE MAGNESIUM
     Indication: Prophylaxis against gastrointestinal ulcer
     Dosage: 20 MG, QD
     Route: 048
     Dates: start: 20000820, end: 20000917
  76. ESTRIOL [Suspect]
     Active Substance: ESTRIOL
     Indication: Vulvovaginal disorder
     Dosage: 1 DOSAGE FORM, ONCE A DAY
     Route: 067
     Dates: start: 20000820, end: 20000906
  77. ESTRIOL [Suspect]
     Active Substance: ESTRIOL
     Indication: Vulvovaginal disorder
     Dosage: 1 DOSAGE FORM, QD (1 DOSE DAILY)
     Route: 067
     Dates: start: 20000820, end: 20000906
  78. MINERALS\VITAMINS [Suspect]
     Active Substance: MINERALS\VITAMINS
     Indication: Vulvovaginal disorder
     Dosage: 1 DF, 1 DOSE DAILY
     Route: 067
     Dates: start: 20000820, end: 20000906
  79. PLAVIX [Suspect]
     Active Substance: CLOPIDOGREL BISULFATE
     Indication: Coagulopathy
     Dosage: 75 MG, 1 DOSE DAILY
     Route: 048
     Dates: start: 20000913, end: 20000917
  80. PLAVIX [Suspect]
     Active Substance: CLOPIDOGREL BISULFATE
     Indication: Thrombosis prophylaxis
  81. PLAVIX [Suspect]
     Active Substance: CLOPIDOGREL BISULFATE
     Indication: Coagulopathy
  82. PREDNISONE [Suspect]
     Active Substance: PREDNISONE
     Indication: Pemphigoid
     Dosage: 60 MILLIGRAM, QD
     Route: 048
     Dates: start: 20000820, end: 20000917
  83. PREDNISONE [Suspect]
     Active Substance: PREDNISONE
     Indication: Dermatitis bullous
     Dosage: 60 MILLIGRAM, QD
     Route: 048
  84. PREDNISONE [Suspect]
     Active Substance: PREDNISONE
     Dosage: 80 MG, QD
     Route: 048
  85. PREDNISONE [Suspect]
     Active Substance: PREDNISONE
     Dosage: 40 MG, QD
     Route: 048
  86. PREDNISONE [Suspect]
     Active Substance: PREDNISONE
     Dosage: 50 MILLIGRAM, QD
     Route: 048
  87. CLEMASTINE FUMARATE [Suspect]
     Active Substance: CLEMASTINE FUMARATE
     Indication: Pemphigoid
     Dosage: 4 UNK
     Route: 048
     Dates: start: 20000820, end: 20000828
  88. CLEMASTINE FUMARATE [Suspect]
     Active Substance: CLEMASTINE FUMARATE
     Indication: Pemphigoid
     Dosage: 4 DOSAGE FORM
     Route: 048
     Dates: start: 20000820, end: 20000828
  89. TORSEMIDE [Suspect]
     Active Substance: TORSEMIDE
     Indication: Cardiac failure
     Dosage: 5 MILLIGRAM, ONCE A DAY
     Route: 048
     Dates: start: 20000820, end: 20000917
  90. TORSEMIDE [Suspect]
     Active Substance: TORSEMIDE
     Indication: Cardiac failure
     Dosage: 5 MG, 1 DOSE DAILY
     Route: 048
     Dates: start: 20000820, end: 20000917
  91. TORSEMIDE [Suspect]
     Active Substance: TORSEMIDE
     Dosage: 140 MILLIGRAM
     Route: 065
  92. TORSEMIDE [Suspect]
     Active Substance: TORSEMIDE
     Dosage: UNK
     Route: 065
  93. VIOXX [Suspect]
     Active Substance: ROFECOXIB
     Indication: Rheumatic disorder
     Dosage: 25 MG, 1 DOSE DAILY
     Route: 048
     Dates: start: 20000907, end: 20000917
  94. VIOXX [Suspect]
     Active Substance: ROFECOXIB
     Dosage: UNK
     Route: 065
  95. XYLOCAINE [Suspect]
     Active Substance: LIDOCAINE HYDROCHLORIDE
     Indication: Local anaesthesia
     Dosage: UNK
     Route: 058
     Dates: start: 20000913, end: 20000913
  96. OMEPRAZOLE [Concomitant]
     Active Substance: OMEPRAZOLE
     Indication: Prophylaxis against gastrointestinal ulcer
     Dosage: 20 MILLIGRAM, ONCE A DAY
     Route: 048
     Dates: start: 20000820, end: 20000917
  97. CALCIUM GLUCONATE [Concomitant]
     Active Substance: CALCIUM GLUCONATE
     Indication: Osteoporosis
     Dosage: 1 DOSAGE FORM, QD (1 DOSE DAILY)
     Route: 048
     Dates: start: 20000820, end: 20000917
  98. MOLSIDOMINE [Concomitant]
     Active Substance: MOLSIDOMINE
     Indication: Coronary artery disease
     Dosage: 1 DOSAGE FORM, ONCE A DAY
     Route: 048
     Dates: start: 20000820, end: 20000914
  99. MOLSIDOMINE [Concomitant]
     Active Substance: MOLSIDOMINE
     Dosage: 8 MILLIGRAM, ONCE A DAY
     Route: 048
     Dates: start: 20000820, end: 20000914
  100. CALCIUM CHLORIDE [Concomitant]
     Active Substance: CALCIUM CHLORIDE
     Indication: Fluid retention
     Dosage: UNK
     Route: 042
     Dates: start: 20000913, end: 20000914
  101. CALCIUM CHLORIDE [Concomitant]
     Active Substance: CALCIUM CHLORIDE
     Indication: Electrolyte depletion
     Dosage: UNK
     Route: 065
     Dates: start: 20000820, end: 20000917
  102. CALCIUM CHLORIDE [Concomitant]
     Active Substance: CALCIUM CHLORIDE
     Indication: Osteoporosis
     Dosage: UNK
     Route: 065
  103. CALCIUM CHLORIDE [Concomitant]
     Active Substance: CALCIUM CHLORIDE
     Dosage: UNK
     Route: 065
  104. CALCIUM CHLORIDE [Concomitant]
     Active Substance: CALCIUM CHLORIDE
     Dosage: UNK
     Route: 065
  105. CALCIUM [Concomitant]
     Active Substance: CALCIUM
     Indication: Electrolyte depletion
     Dosage: UNK
     Route: 042
     Dates: start: 20000913, end: 20000914
  106. CALCIUM [Concomitant]
     Active Substance: CALCIUM
     Indication: Osteoporosis
     Dosage: 1 DF, 1 DOSE DAILY
     Route: 048
     Dates: start: 20000820, end: 20000917
  107. CALCIUM CITRATE [Concomitant]
     Active Substance: CALCIUM CITRATE
     Indication: Osteoporosis
     Dosage: 1 DOSAGE FORMS DAILY; 1 DOSAGE FORM, QD (1 DOSE DAILY)
     Route: 048
     Dates: start: 20000820, end: 20000917
  108. COTRIM [Concomitant]
     Active Substance: SULFAMETHOXAZOLE\TRIMETHOPRIM
     Indication: Urinary tract infection
     Dosage: 1 DF, 1 DOSE DAILY
     Route: 048
     Dates: start: 20000916, end: 20000917
  109. CALCIUM CARBONATE\CALCIUM LACTATE GLUCONATE [Concomitant]
     Active Substance: CALCIUM CARBONATE\CALCIUM LACTATE GLUCONATE
     Indication: Osteoporosis
     Dosage: 1 DOSAGE FORM, ONCE A DAY
     Route: 048
     Dates: start: 20000820, end: 20000917
  110. PREDNISOLONE [Concomitant]
     Active Substance: PREDNISOLONE
     Indication: Dermatitis bullous
     Dosage: UNK
     Route: 048
     Dates: start: 20000820, end: 20000917
  111. PREDNISOLONE [Concomitant]
     Active Substance: PREDNISOLONE
     Indication: Pemphigoid
     Dosage: UNK
     Route: 065
  112. FENTANYL [Concomitant]
     Active Substance: FENTANYL\FENTANYL CITRATE
     Indication: Pain
     Dosage: 1 DOSAGE FORM
     Route: 062
     Dates: start: 20000820, end: 20000916
  113. FRAGMIN [Concomitant]
     Active Substance: DALTEPARIN SODIUM
     Indication: Coagulopathy
     Dosage: UNK
     Route: 058
     Dates: start: 20000820, end: 20000917
  114. FENTANYL [Concomitant]
     Active Substance: FENTANYL\FENTANYL CITRATE
     Indication: Pain
     Dosage: 1 DOSAGE FORM
     Route: 062
     Dates: start: 20000820, end: 20000916
  115. GLYBURIDE [Concomitant]
     Active Substance: GLYBURIDE
     Indication: Diabetes mellitus
     Dosage: 3DF
     Route: 048
     Dates: start: 20000820, end: 20000917
  116. DEXTROSE [Concomitant]
     Active Substance: DEXTROSE\DEXTROSE MONOHYDRATE
     Indication: Diabetes mellitus
     Dosage: UNK
     Route: 042
     Dates: start: 20000913, end: 20000913
  117. DEXTROSE [Concomitant]
     Active Substance: DEXTROSE\DEXTROSE MONOHYDRATE
     Indication: Cardiovascular disorder
     Dosage: UNK
     Route: 065
  118. DEXTROSE [Concomitant]
     Active Substance: DEXTROSE\DEXTROSE MONOHYDRATE
     Indication: Cardiovascular disorder
     Dosage: UNK
     Route: 065
  119. MOLSIDOMINE [Concomitant]
     Active Substance: MOLSIDOMINE
     Indication: Coronary artery disease
     Dosage: 1 DF, 1 DOSE DAILY
     Route: 048
     Dates: start: 20000820, end: 20000914
  120. NOREPINEPHRINE [Concomitant]
     Active Substance: NOREPINEPHRINE\NOREPINEPHRINE BITARTRATE
     Indication: Diabetes mellitus
     Dosage: 3 DOSAGE FORM
     Route: 042
     Dates: start: 20000913, end: 20000913
  121. OMEPRAZOLE MAGNESIUM [Concomitant]
     Active Substance: OMEPRAZOLE MAGNESIUM
     Indication: Prophylaxis against gastrointestinal ulcer
     Dosage: 20 MG, QD
     Route: 048
     Dates: start: 20000820, end: 20000917
  122. OMEPRAZOLE [Concomitant]
     Active Substance: OMEPRAZOLE
     Indication: Prophylaxis against gastrointestinal ulcer
     Dosage: 20 MG, 1 DOSE DAILY
     Route: 048
     Dates: start: 20000820, end: 20000917
  123. PREDNISONE [Concomitant]
     Active Substance: PREDNISONE
     Indication: Product used for unknown indication
     Dosage: UNK
     Route: 065
  124. PREDNISONE [Concomitant]
     Active Substance: PREDNISONE
     Dosage: UNK
     Route: 065
  125. POTASSIUM CHLORIDE [Concomitant]
     Active Substance: POTASSIUM CHLORIDE
     Indication: Fluid retention
     Dosage: UNK
     Route: 042
     Dates: start: 20000913, end: 20000914
  126. POTASSIUM CHLORIDE [Concomitant]
     Active Substance: POTASSIUM CHLORIDE
     Indication: Electrolyte depletion
     Dosage: UNK
     Route: 065
     Dates: start: 20000820, end: 20000917
  127. POTASSIUM CHLORIDE [Concomitant]
     Active Substance: POTASSIUM CHLORIDE
     Indication: Diabetes mellitus
     Dosage: UNK
     Route: 065
  128. POTASSIUM CHLORIDE [Concomitant]
     Active Substance: POTASSIUM CHLORIDE
     Dosage: UNK
     Route: 065
  129. POTASSIUM CHLORIDE [Concomitant]
     Active Substance: POTASSIUM CHLORIDE
     Dosage: UNK
     Route: 065
  130. RINGERS SOLUTION [Concomitant]
     Active Substance: CALCIUM CHLORIDE\POTASSIUM CHLORIDE\SODIUM CHLORIDE
     Indication: Electrolyte depletion
     Dosage: UNK
     Route: 042
     Dates: start: 20000913, end: 20000914
  131. SODIUM CHLORIDE [Concomitant]
     Active Substance: SODIUM CHLORIDE
     Indication: Electrolyte depletion
     Dosage: UNK
     Route: 042
     Dates: start: 20000913, end: 20000914
  132. SULFAMETHOXAZOLE [Concomitant]
     Active Substance: SULFAMETHOXAZOLE
     Indication: Urinary tract infection
     Dosage: UNK
     Route: 065
     Dates: start: 20000916, end: 20000917
  133. TORSEMIDE [Concomitant]
     Active Substance: TORSEMIDE
     Indication: Cardiac failure
     Dosage: 5 MILLIGRAM, ONCE A DAY
     Route: 048
     Dates: start: 20000820, end: 20000917

REACTIONS (7)
  - Blister [Recovered/Resolved]
  - Conjunctivitis [Recovered/Resolved]
  - Erythema [Recovered/Resolved]
  - Genital erosion [Recovered/Resolved]
  - Mucosal erosion [Recovered/Resolved]
  - Mouth ulceration [Recovered/Resolved]
  - Toxic epidermal necrolysis [Recovered/Resolved]

NARRATIVE: CASE EVENT DATE: 20000916
